FAERS Safety Report 9470514 (Version 5)
Quarter: 2013Q3

REPORT INFORMATION
  Report Type: Spontaneous
  Country: US (occurrence: US)
  Receive Date: 20130822
  Receipt Date: 20130917
  Transmission Date: 20140515
  Serious: Yes (Hospitalization, Other)
  Sender: FDA-Public Use
  Company Number: US-JNJFOC-20130808435

PATIENT
  Age: 33 Year
  Sex: Female
  Weight: 86.18 kg

DRUGS (2)
  1. XARELTO [Suspect]
     Indication: PULMONARY EMBOLISM
     Route: 048
     Dates: start: 2013, end: 201308
  2. BIRTH CONTROL PILLS [Concomitant]
     Route: 065

REACTIONS (3)
  - Dizziness [Unknown]
  - Haemoglobin decreased [Unknown]
  - Menorrhagia [Unknown]
